FAERS Safety Report 8281043 (Version 14)
Quarter: 2013Q4

REPORT INFORMATION
  Report Type: Report from Study
  Country: US (occurrence: US)
  Receive Date: 20111208
  Receipt Date: 20131220
  Transmission Date: 20140711
  Serious: Yes (Hospitalization, Other)
  Sender: FDA-Public Use
  Company Number: US-ROCHE-1019523

PATIENT
  Age: 49 Year
  Sex: Female
  Weight: 55.84 kg

DRUGS (11)
  1. PEGASYS [Suspect]
     Indication: CHRONIC HEPATITIS C
     Route: 058
     Dates: start: 20110518, end: 20111117
  2. PEGASYS [Suspect]
     Route: 058
     Dates: start: 20130103, end: 20131127
  3. COPEGUS [Suspect]
     Indication: HEPATITIS C
     Dosage: DIVIDED DOSES
     Route: 065
     Dates: start: 20110518, end: 20111117
  4. COPEGUS [Suspect]
     Dosage: DIVIDED DOSES
     Route: 065
     Dates: start: 20130103
  5. RIBAPAK [Suspect]
     Indication: CHRONIC HEPATITIS C
     Route: 048
     Dates: start: 20130103, end: 20131127
  6. RIBAPAK [Suspect]
     Route: 048
  7. BOCEPREVIR [Suspect]
     Indication: CHRONIC HEPATITIS C
     Route: 065
  8. ONDANSETRON [Concomitant]
     Route: 065
  9. WELLBUTRIN [Concomitant]
     Indication: DEPRESSION
     Route: 065
  10. WELLBUTRIN [Concomitant]
     Indication: EX-TOBACCO USER
  11. LAMICTAL [Concomitant]
     Route: 065

REACTIONS (25)
  - Pneumonia [Unknown]
  - White blood cell count decreased [Not Recovered/Not Resolved]
  - Anaemia [Not Recovered/Not Resolved]
  - Depression [Unknown]
  - Alopecia [Unknown]
  - Weight decreased [Unknown]
  - Nausea [Unknown]
  - Mood swings [Unknown]
  - Haematemesis [Unknown]
  - Decreased appetite [Unknown]
  - Asthenia [Unknown]
  - Eructation [Unknown]
  - Memory impairment [Unknown]
  - Disturbance in attention [Unknown]
  - Anaemia [Unknown]
  - Joint swelling [Unknown]
  - Vomiting [Unknown]
  - Medication error [Unknown]
  - Hallucination [Unknown]
  - Dysgeusia [Unknown]
  - Stress [Unknown]
  - Appetite disorder [Unknown]
  - Swelling [Unknown]
  - Vomiting [Recovering/Resolving]
  - Nausea [Unknown]
